FAERS Safety Report 17336905 (Version 1)
Quarter: 2020Q1

REPORT INFORMATION
  Report Type: Spontaneous
  Country: FR (occurrence: FR)
  Receive Date: 20200128
  Receipt Date: 20200128
  Transmission Date: 20200409
  Serious: Yes (Hospitalization, Other)
  Sender: FDA-Public Use
  Company Number: FR-BRISTOL-MYERS SQUIBB COMPANY-BMS-2020-005646

PATIENT
  Age: 90 Year
  Sex: Male
  Weight: 75 kg

DRUGS (6)
  1. ORBENINE [Suspect]
     Active Substance: CLOXACILLIN SODIUM
     Indication: STAPHYLOCOCCAL BACTERAEMIA
     Dosage: 12 GRAM, QD
     Route: 042
     Dates: start: 20191007, end: 20191009
  2. APIXABAN [Suspect]
     Active Substance: APIXABAN
     Indication: CEREBROVASCULAR ACCIDENT PROPHYLAXIS
     Dosage: 2.5 MILLIGRAM, Q12H
     Route: 065
  3. NEBIVOLOL. [Suspect]
     Active Substance: NEBIVOLOL
     Indication: PRODUCT USED FOR UNKNOWN INDICATION
     Dosage: UNK
     Route: 065
  4. ORBENINE [Suspect]
     Active Substance: CLOXACILLIN SODIUM
     Indication: PRODUCT USED FOR UNKNOWN INDICATION
     Dosage: 12 GRAM, QD
     Route: 042
     Dates: start: 20191024, end: 20191205
  5. COTRIMOXAZOLE [Suspect]
     Active Substance: SULFAMETHOXAZOLE\TRIMETHOPRIM
     Indication: PRODUCT USED FOR UNKNOWN INDICATION
     Dosage: 1200 MILLIGRAM, Q12H
     Route: 065
     Dates: start: 20191118
  6. ORBENINE [Suspect]
     Active Substance: CLOXACILLIN SODIUM
     Indication: PRODUCT USED FOR UNKNOWN INDICATION
     Dosage: 6 GRAM, QD
     Route: 042

REACTIONS (15)
  - Hyperleukocytosis [Not Recovered/Not Resolved]
  - Haematuria [Unknown]
  - Cardiac failure [Recovering/Resolving]
  - Hypotension [Unknown]
  - Urinary retention [Unknown]
  - Confusional state [Unknown]
  - Pseudomonas infection [Unknown]
  - Anaemia [Unknown]
  - Pyrexia [Unknown]
  - Decubitus ulcer [Unknown]
  - Red blood cell count decreased [Unknown]
  - Inflammation [Unknown]
  - Hypermetabolism [Unknown]
  - Pleural effusion [Unknown]
  - Renal impairment [Not Recovered/Not Resolved]

NARRATIVE: CASE EVENT DATE: 20191009
